FAERS Safety Report 8080434-7 (Version None)
Quarter: 2012Q1

REPORT INFORMATION
  Report Type: 
  Country: None (occurrence: None)
  Receive Date: 20120130
  Receipt Date: 20120119
  Transmission Date: 20120608
  Serious: Yes (Other)
  Sender: FDA-Public Use
  Company Number: BR-PFIZER INC-2012016656

PATIENT
  Age: 63 Year
  Sex: Male

DRUGS (3)
  1. ASPIRIN [Concomitant]
     Dosage: UNK
     Dates: start: 19940419
  2. CELEBREX [Suspect]
     Dosage: 200 MG, 2X/DAY (EVERY 12 HRS)
     Route: 048
     Dates: start: 20020101, end: 20020101
  3. METFORMIN [Concomitant]
     Indication: DIABETES MELLITUS
     Dosage: UNK

REACTIONS (1)
  - SPINAL DISORDER [None]
